FAERS Safety Report 7510314-4 (Version None)
Quarter: 2011Q2

REPORT INFORMATION
  Report Type: 
  Country: None (occurrence: None)
  Receive Date: 20110527
  Receipt Date: 20110512
  Transmission Date: 20111010
  Serious: Yes (Other)
  Sender: FDA-Public Use
  Company Number: US-UCBSA-031545

PATIENT
  Sex: Female
  Weight: 65 kg

DRUGS (8)
  1. BACTROBAN [Concomitant]
     Indication: ECZEMA
     Dosage: 2 YEARS AGO
     Route: 061
  2. LEVBID [Concomitant]
     Indication: ABDOMINAL PAIN
     Dates: start: 20110101, end: 20110101
  3. CIMZIA [Suspect]
     Indication: CROHN'S DISEASE
     Route: 058
     Dates: start: 20110113, end: 20110101
  4. MACROBID [Concomitant]
     Indication: URINARY TRACT INFECTION
     Dosage: 10 YEARS,5-10 TABS MONTH
     Route: 061
  5. ZYRTEC [Concomitant]
     Indication: SEASONAL ALLERGY
     Dosage: NUMBER OF INTAKES(PER DAY):ONE,2 YEARS AGO
     Route: 048
  6. CLOBETASOL PROPIONATE [Concomitant]
     Indication: ECZEMA
     Dosage: 2 YEARS AGO
     Route: 061
  7. EPICERAM CREAM [Concomitant]
     Indication: ECZEMA
     Dosage: 2 YEARS AGO,
     Route: 061
  8. ALBUTEROL SULFATE AUTOHALER [Concomitant]
     Indication: ASTHMA
     Dosage: 3-4 MONTHS,VARIABLE,3-4 MONTHS
     Route: 055

REACTIONS (1)
  - HERPES ZOSTER [None]
